FAERS Safety Report 12142935 (Version 1)
Quarter: 2016Q1

REPORT INFORMATION
  Report Type: Spontaneous
  Country: US (occurrence: US)
  Receive Date: 20160303
  Receipt Date: 20160303
  Transmission Date: 20160526
  Serious: Yes (Hospitalization, Other)
  Sender: FDA-Public Use
  Company Number: US-TEVA-639132USA

PATIENT
  Age: 59 Year
  Sex: Male

DRUGS (3)
  1. NUVIGIL [Suspect]
     Active Substance: ARMODAFINIL
     Indication: ACTIVITIES OF DAILY LIVING IMPAIRED
     Route: 065
  2. MODAFINIL. [Suspect]
     Active Substance: MODAFINIL
     Route: 065
  3. PROVIGIL [Suspect]
     Active Substance: MODAFINIL
     Route: 065

REACTIONS (4)
  - Suicide attempt [Unknown]
  - Bedridden [Unknown]
  - Paralysis [Unknown]
  - Product use issue [Unknown]
